FAERS Safety Report 9030647 (Version 1)
Quarter: 2013Q1

REPORT INFORMATION
  Report Type: Spontaneous
  Country: KR (occurrence: KR)
  Receive Date: 20130123
  Receipt Date: 20130123
  Transmission Date: 20140127
  Serious: Yes (Other)
  Sender: FDA-Public Use
  Company Number: KR-BAYER-2013-005270

PATIENT
  Age: 63 Year
  Sex: Male

DRUGS (3)
  1. NEXAVAR [Suspect]
     Dosage: DAILY DOSE 800 MG
     Dates: start: 20101013, end: 201011
  2. NEXAVAR [Suspect]
     Dosage: DAILY DOSE 400 MG
     Route: 048
     Dates: start: 20101110, end: 201103
  3. NEXAVAR [Suspect]
     Dosage: DAILY DOSE 200 MG
     Route: 048
     Dates: start: 20110324, end: 20111119

REACTIONS (8)
  - Appendicitis [None]
  - Palmar-plantar erythrodysaesthesia syndrome [None]
  - Abdominal pain [None]
  - Alopecia [None]
  - Rash [None]
  - Diarrhoea [None]
  - Anal infection [None]
  - Palmar-plantar erythrodysaesthesia syndrome [None]
